FAERS Safety Report 17099423 (Version 1)
Quarter: 2019Q4

REPORT INFORMATION
  Report Type: Spontaneous
  Country: US (occurrence: US)
  Receive Date: 20191201
  Receipt Date: 20191201
  Transmission Date: 20200122
  Serious: Yes (Hospitalization)
  Sender: FDA-Public Use
  Company Number: None

PATIENT
  Age: 84 Year
  Sex: Male
  Weight: 87.1 kg

DRUGS (9)
  1. INSULIN GLARGINE 20 UNITS DAILY [Concomitant]
  2. FUROSEMIDE 20MG DAILY [Concomitant]
  3. DABIGATRAN [Suspect]
     Active Substance: DABIGATRAN
     Indication: ATRIAL FIBRILLATION
     Route: 048
     Dates: start: 20141231
  4. MEMANTINE 10MG BID [Concomitant]
  5. LOSARTAN 25MG DAILY [Concomitant]
     Active Substance: LOSARTAN
  6. SIMVASTATIN 40MG DAILY [Concomitant]
  7. ASPRIN [Suspect]
     Active Substance: ASPIRIN
     Route: 048
     Dates: start: 20150119
  8. FLUOXETINE 20MG DAILY [Concomitant]
  9. OXYCODONE 5MG Q 4 HOURS PRN [Concomitant]

REACTIONS (3)
  - Hip surgery [None]
  - Post procedural haemorrhage [None]
  - Haemorrhage urinary tract [None]

NARRATIVE: CASE EVENT DATE: 20150320
